FAERS Safety Report 5764971-3 (Version None)
Quarter: 2008Q2

REPORT INFORMATION
  Report Type: 
  Country: None (occurrence: None)
  Receive Date: 20080611
  Receipt Date: 20080605
  Transmission Date: 20081010
  Serious: Yes (Other)
  Sender: FDA-Public Use
  Company Number: B0524318A

PATIENT
  Age: 78 Year
  Sex: Female

DRUGS (6)
  1. NABUMETONE [Suspect]
     Dosage: 500MG TWICE PER DAY
     Route: 048
     Dates: start: 20080114, end: 20080117
  2. VALSARTAN AND HYDROCHLOROTHIAZIDE [Concomitant]
  3. FORADIL [Concomitant]
  4. ASPEGIC 1000 [Concomitant]
  5. FOSAVANCE [Concomitant]
  6. NASACORT [Concomitant]

REACTIONS (3)
  - HYPERTENSIVE CRISIS [None]
  - OEDEMA PERIPHERAL [None]
  - VERTIGO [None]
